FAERS Safety Report 7168260-4 (Version None)
Quarter: 2010Q4

REPORT INFORMATION
  Report Type: 
  Country: None (occurrence: None)
  Receive Date: 20101216
  Receipt Date: 20101202
  Transmission Date: 20110411
  Serious: Yes (Hospitalization, Other)
  Sender: FDA-Public Use
  Company Number: ES-AMGEN-US371671

PATIENT

DRUGS (4)
  1. ENBREL [Suspect]
     Indication: RHEUMATOID ARTHRITIS
     Dosage: 50 MG, QWK
     Route: 058
     Dates: start: 20050501
  2. NAPROXEN [Concomitant]
     Dosage: 1000 MG, QD
     Route: 048
     Dates: start: 20090701, end: 20090701
  3. OMEPRAZOLE [Concomitant]
     Dosage: 20 MG, QD
     Route: 048
     Dates: end: 20090701
  4. PREDNISONE [Concomitant]
     Dosage: 10 MG, QD
     Route: 048
     Dates: end: 20090701

REACTIONS (3)
  - ANGINA UNSTABLE [None]
  - CEREBRAL ARTERY THROMBOSIS [None]
  - RETINAL VASCULAR THROMBOSIS [None]
